FAERS Safety Report 5168523-8 (Version None)
Quarter: 2006Q4

REPORT INFORMATION
  Report Type: 
  Country: None (occurrence: None)
  Receive Date: 20061201
  Receipt Date: 20060727
  Transmission Date: 20070319
  Serious: Yes (Death)
  Sender: FDA-Public Use
  Company Number: 2006067740

PATIENT
  Age: 76 Year
  Sex: Male
  Weight: 52 kg

DRUGS (8)
  1. SILDENAFIL CITRATE [Suspect]
     Indication: PULMONARY HYPERTENSION
     Dosage: 50 MG (50 MG, 1 IN 1 D), ORAL
     Route: 048
     Dates: start: 20041222, end: 20041222
  2. BERAPROST (BERAPROST) [Concomitant]
  3. OXYGEN (OXYGEN) [Concomitant]
  4. LASIX [Concomitant]
  5. NORVASC [Concomitant]
  6. URINORM (BENZBROMARONE) [Concomitant]
  7. ANPLAG (SARPOGRELATE HYDROCHLORIDE) [Concomitant]
  8. LANSOPRAZOLE [Concomitant]

REACTIONS (2)
  - INTERSTITIAL LUNG DISEASE [None]
  - OFF LABEL USE [None]
